FAERS Safety Report 8184774-2 (Version None)
Quarter: 2012Q1

REPORT INFORMATION
  Report Type: 
  Country: None (occurrence: None)
  Receive Date: 20120305
  Receipt Date: 20120305
  Transmission Date: 20120608
  Serious: Yes (Life-Threatening, Hospitalization, Other)
  Sender: FDA-Public Use
  Company Number: None

PATIENT
  Sex: Male
  Weight: 88.45 kg

DRUGS (1)
  1. PREDNISONE [Suspect]
     Indication: EAR DISCOMFORT
     Dosage: 6 DAY PACK
     Route: 048
     Dates: start: 20120205, end: 20120207

REACTIONS (28)
  - FEELING HOT [None]
  - MYDRIASIS [None]
  - FEELING ABNORMAL [None]
  - DECREASED APPETITE [None]
  - CHEST PAIN [None]
  - TACHYPHRENIA [None]
  - FLUSHING [None]
  - ABDOMINAL PAIN UPPER [None]
  - WHITE BLOOD CELL COUNT INCREASED [None]
  - APPARENT DEATH [None]
  - PARAESTHESIA [None]
  - MUSCULAR WEAKNESS [None]
  - HALLUCINATION [None]
  - HYPOAESTHESIA [None]
  - PANIC ATTACK [None]
  - DRUG EFFECT DECREASED [None]
  - INSOMNIA [None]
  - BLOOD POTASSIUM DECREASED [None]
  - AGITATION [None]
  - PALPITATIONS [None]
  - BLOOD UREA NITROGEN/CREATININE RATIO DECREASED [None]
  - ERYTHEMA [None]
  - NAUSEA [None]
  - DIZZINESS [None]
  - FEAR [None]
  - ABDOMINAL DISCOMFORT [None]
  - DIARRHOEA [None]
  - CHEST DISCOMFORT [None]
